FAERS Safety Report 25208530 (Version 1)
Quarter: 2025Q2

REPORT INFORMATION
  Report Type: Spontaneous
  Country: US (occurrence: None)
  Receive Date: 20250416
  Receipt Date: 20250416
  Transmission Date: 20250717
  Serious: Yes (Hospitalization)
  Sender: FDA-CTU
  Company Number: None

PATIENT
  Age: 41 Year
  Sex: Female
  Weight: 135.17 kg

DRUGS (1)
  1. PIPERACILLIN AND TAZOBACTAM [Suspect]
     Active Substance: PIPERACILLIN SODIUM\TAZOBACTAM SODIUM
     Indication: Diverticulitis
     Dosage: OTHER QUANTITY : 3.375 GM;?FREQUENCY : 3 TIMES A DAY;?
     Route: 042
     Dates: start: 20250326, end: 20250415

REACTIONS (5)
  - Hypoaesthesia [None]
  - Hypoaesthesia [None]
  - Pain [None]
  - Amnesia [None]
  - Therapy interrupted [None]

NARRATIVE: CASE EVENT DATE: 20250414
